FAERS Safety Report 9208274 (Version 2)
Quarter: 2013Q2

REPORT INFORMATION
  Report Type: Spontaneous
  Country: US (occurrence: US)
  Receive Date: 20130403
  Receipt Date: 20130507
  Transmission Date: 20140414
  Serious: Yes (Disabling)
  Sender: FDA-Public Use
  Company Number: US-PFIZER INC-2013103009

PATIENT
  Sex: 0

DRUGS (2)
  1. CELEBREX [Suspect]
     Indication: BACK PAIN
     Dosage: 200 MG, UNK
  2. CELEBREX [Suspect]
     Indication: NERVE INJURY

REACTIONS (4)
  - Off label use [Unknown]
  - Injury [Unknown]
  - Pain [Unknown]
  - Abdominal pain upper [Recovered/Resolved]
